FAERS Safety Report 4463925-7 (Version None)
Quarter: 2004Q3

REPORT INFORMATION
  Report Type: 
  Country: None (occurrence: None)
  Receive Date: 20040929
  Receipt Date: 20040915
  Transmission Date: 20050211
  Serious: Yes (Hospitalization, Other)
  Sender: FDA-Public Use
  Company Number: US_0409105445

PATIENT
  Age: 42 Year
  Sex: Male
  Weight: 79 kg

DRUGS (1)
  1. ZYPREXA [Suspect]
     Indication: DELUSIONAL DISORDER, PERSECUTORY TYPE
     Dosage: 10 MG DAY

REACTIONS (28)
  - ABDOMINAL DISTENSION [None]
  - ABDOMINAL PAIN [None]
  - ABDOMINAL RIGIDITY [None]
  - ALANINE AMINOTRANSFERASE INCREASED [None]
  - ASCITES [None]
  - BLOOD AMYLASE INCREASED [None]
  - BLOOD CHOLESTEROL INCREASED [None]
  - BLOOD GLUCOSE INCREASED [None]
  - BLOOD TRIGLYCERIDES INCREASED [None]
  - BOWEL SOUNDS ABNORMAL [None]
  - CALCIUM IONISED DECREASED [None]
  - CANDIDIASIS [None]
  - GASTROINTESTINAL DISORDER [None]
  - GENERAL PHYSICAL CONDITION ABNORMAL [None]
  - GLYCOSYLATED HAEMOGLOBIN INCREASED [None]
  - HAEMODIALYSIS [None]
  - KETOACIDOSIS [None]
  - NODULE [None]
  - OEDEMATOUS PANCREATITIS [None]
  - PANCREATIC ENLARGEMENT [None]
  - PANCREATIC PSEUDOCYST [None]
  - POLYDIPSIA [None]
  - POLYURIA [None]
  - RENAL FAILURE [None]
  - RENAL FAILURE ACUTE [None]
  - RESPIRATORY FAILURE [None]
  - SHOCK [None]
  - WHITE BLOOD CELL COUNT INCREASED [None]
